FAERS Safety Report 20390651 (Version 4)
Quarter: 2022Q1

REPORT INFORMATION
  Report Type: Report from Study
  Country: US (occurrence: US)
  Receive Date: 20220128
  Receipt Date: 20220316
  Transmission Date: 20220423
  Serious: Yes (Hospitalization)
  Sender: FDA-Public Use
  Company Number: US-NOVARTISTESTPH-NVSC2022US018261

PATIENT
  Sex: Female

DRUGS (1)
  1. ENTRESTO [Suspect]
     Active Substance: SACUBITRIL\VALSARTAN
     Indication: Product used for unknown indication
     Dosage: 1 DOSAGE FORM, BID (24/26MG)
     Route: 048

REACTIONS (7)
  - COVID-19 [Recovering/Resolving]
  - Taste disorder [Unknown]
  - Pneumonia [Recovering/Resolving]
  - Flank pain [Unknown]
  - Asthma [Unknown]
  - Cough [Unknown]
  - Weight decreased [Unknown]
